FAERS Safety Report 14964007 (Version 1)
Quarter: 2018Q2

REPORT INFORMATION
  Report Type: Spontaneous
  Country: US (occurrence: US)
  Receive Date: 20180601
  Receipt Date: 20180601
  Transmission Date: 20180711
  Serious: Yes (Other)
  Sender: FDA-Public Use
  Company Number: US-GLENMARK PHARMACEUTICALS-2018GMK035801

PATIENT

DRUGS (4)
  1. QUETIAPINE. [Suspect]
     Active Substance: QUETIAPINE
     Indication: MENTAL DISORDER
     Dosage: UNK; HIGH DOSE
     Route: 065
  2. PAROXETINE. [Suspect]
     Active Substance: PAROXETINE
     Indication: MENTAL DISORDER
     Dosage: UNK; HIGH DOSES
     Route: 065
  3. BUSPIRONE [Suspect]
     Active Substance: BUSPIRONE HYDROCHLORIDE
     Indication: MENTAL DISORDER
     Dosage: UNK; HIGH DOSES
     Route: 065
  4. LAMOTRIGINE. [Suspect]
     Active Substance: LAMOTRIGINE
     Indication: MENTAL DISORDER
     Dosage: UNK; HIGH DOSES
     Route: 065

REACTIONS (6)
  - Cognitive disorder [Recovering/Resolving]
  - Resting tremor [Recovering/Resolving]
  - Hallucinations, mixed [Recovering/Resolving]
  - Gait disturbance [Recovering/Resolving]
  - Disinhibition [Recovering/Resolving]
  - Fall [Recovering/Resolving]
